FAERS Safety Report 11829406 (Version 1)
Quarter: 2015Q4

REPORT INFORMATION
  Report Type: Spontaneous
  Country: US (occurrence: US)
  Receive Date: 20151211
  Receipt Date: 20151211
  Transmission Date: 20160305
  Serious: No
  Sender: FDA-Public Use
  Company Number: US-BAUSCH-BL-2015-013690

PATIENT
  Age: 72 Year
  Sex: Male
  Weight: 78.09 kg

DRUGS (2)
  1. XENAZINE [Suspect]
     Active Substance: TETRABENAZINE
     Dosage: 12.5 MG, TAKING ONE TABLET ORALLY EVERY MORNING, HALF TABLET ORALLY AT NOON, AND 1 TABLET ORALLY AT
     Route: 048
     Dates: start: 20150313, end: 2015
  2. XENAZINE [Suspect]
     Active Substance: TETRABENAZINE
     Indication: HUNTINGTON^S DISEASE
     Route: 048
     Dates: start: 20150312

REACTIONS (3)
  - Drug ineffective [Unknown]
  - Drug administration error [Unknown]
  - Weight increased [Unknown]

NARRATIVE: CASE EVENT DATE: 201503
